FAERS Safety Report 16541752 (Version 1)
Quarter: 2019Q3

REPORT INFORMATION
  Report Type: Spontaneous
  Country: US (occurrence: US)
  Receive Date: 20190708
  Receipt Date: 20190708
  Transmission Date: 20191004
  Serious: No
  Sender: FDA-Public Use
  Company Number: US-LEXICON PHARMACEUTICALS, INC-19-1606-00661

PATIENT
  Sex: Female

DRUGS (18)
  1. FELODIPINE. [Concomitant]
     Active Substance: FELODIPINE
  2. ALIGN [Concomitant]
     Active Substance: BIFIDOBACTERIUM LONGUM SUBSP. INFANTIS
  3. FEXOFENADINE [Concomitant]
     Active Substance: FEXOFENADINE HYDROCHLORIDE
  4. SIMVASTATIN. [Concomitant]
     Active Substance: SIMVASTATIN
  5. OCTREOTIDE ACETATE. [Concomitant]
     Active Substance: OCTREOTIDE ACETATE
  6. MULTIVITAMIN [Concomitant]
     Active Substance: VITAMINS
  7. LEVOTHYROXIN [Concomitant]
     Active Substance: LEVOTHYROXINE
  8. OLANZAPINE. [Concomitant]
     Active Substance: OLANZAPINE
  9. WARFARIN [Concomitant]
     Active Substance: WARFARIN
  10. TELOTRISTAT ETHYL [Suspect]
     Active Substance: TELOTRISTAT ETHYL
     Indication: CARCINOID TUMOUR
     Route: 048
     Dates: start: 20190523
  11. SPIRONOLACTONE. [Concomitant]
     Active Substance: SPIRONOLACTONE
  12. PROTONIX [Concomitant]
     Active Substance: PANTOPRAZOLE SODIUM
  13. TORSEMIDE. [Concomitant]
     Active Substance: TORSEMIDE
  14. LAMOTRIGINE. [Concomitant]
     Active Substance: LAMOTRIGINE
  15. BUPROPION. [Concomitant]
     Active Substance: BUPROPION
  16. DIPHENOXYLATE [Concomitant]
     Active Substance: DIPHENOXYLATE
  17. RISPERDAL [Concomitant]
     Active Substance: RISPERIDONE
  18. COREG [Concomitant]
     Active Substance: CARVEDILOL

REACTIONS (1)
  - Fatigue [Unknown]
